FAERS Safety Report 7348132-2 (Version None)
Quarter: 2011Q1

REPORT INFORMATION
  Report Type: 
  Country: None (occurrence: None)
  Receive Date: 20110311
  Receipt Date: 20110125
  Transmission Date: 20110831
  Serious: Yes (Death)
  Sender: FDA-Public Use
  Company Number: US-TYCO HEALTHCARE/MALLINCKRODT-T201100448

PATIENT
  Age: 40 Year
  Sex: Male

DRUGS (11)
  1. HYDRALAZINE [Suspect]
     Route: 048
  2. FUROSEMIDE [Suspect]
     Route: 048
  3. GLYBURIDE [Suspect]
     Route: 048
  4. AMLODIPINE [Suspect]
     Route: 048
  5. NISOLDIPINE [Suspect]
     Route: 048
  6. HYDROCODONE/ACETAMINOPHEN [Suspect]
     Route: 048
  7. TAMSULOSIN [Suspect]
     Route: 048
  8. SIMVASTATIN [Suspect]
     Route: 048
  9. LEVOTHYROXINE [Suspect]
     Route: 048
  10. ENALAPRIL [Suspect]
     Route: 048
  11. CLOPIDOGREL [Suspect]
     Route: 048

REACTIONS (1)
  - COMPLETED SUICIDE [None]
